FAERS Safety Report 9707464 (Version 1)
Quarter: 2013Q4

REPORT INFORMATION
  Report Type: Spontaneous
  Country: US (occurrence: US)
  Receive Date: 20131125
  Receipt Date: 20131125
  Transmission Date: 20140711
  Serious: No
  Sender: FDA-Public Use
  Company Number: US-TEVA-373884USA

PATIENT
  Sex: Female

DRUGS (2)
  1. PARAGARD 380A [Suspect]
     Indication: CONTRACEPTION
     Route: 015
     Dates: start: 201203
  2. IRON [Concomitant]
     Indication: ANAEMIA

REACTIONS (4)
  - Fungal infection [Not Recovered/Not Resolved]
  - Menorrhagia [Not Recovered/Not Resolved]
  - Anaemia [Not Recovered/Not Resolved]
  - Dysmenorrhoea [Not Recovered/Not Resolved]
